FAERS Safety Report 7511465-0 (Version None)
Quarter: 2011Q2

REPORT INFORMATION
  Report Type: 
  Country: None (occurrence: None)
  Receive Date: 20110531
  Receipt Date: 20110517
  Transmission Date: 20111010
  Serious: No
  Sender: FDA-Public Use
  Company Number: US-ROXANE LABORATORIES, INC.-2011-RO-00706RO

PATIENT
  Sex: Male

DRUGS (3)
  1. PREDNISONE [Suspect]
     Indication: COLITIS ULCERATIVE
     Dosage: 10 MG
  2. AZULFIDINE [Suspect]
     Indication: COLITIS ULCERATIVE
  3. IMODIUM MULTI-SYMPTOM RELIEF [Suspect]
     Indication: COLITIS ULCERATIVE

REACTIONS (2)
  - STAPHYLOCOCCAL INFECTION [None]
  - LIP ULCERATION [None]
